FAERS Safety Report 20408881 (Version 2)
Quarter: 2022Q1

REPORT INFORMATION
  Report Type: Spontaneous
  Country: US (occurrence: US)
  Receive Date: 20220201
  Receipt Date: 20220301
  Transmission Date: 20220424
  Serious: Yes (Hospitalization)
  Sender: FDA-Public Use
  Company Number: US-NEUROCRINE BIOSCIENCES INC.-2022NBI00514

PATIENT

DRUGS (6)
  1. INGREZZA [Suspect]
     Active Substance: VALBENAZINE
     Indication: Tardive dyskinesia
     Dosage: 40 MILLIGRAM, QD
     Route: 048
     Dates: start: 20220117, end: 20220122
  2. LATUDA [Concomitant]
     Active Substance: LURASIDONE HYDROCHLORIDE
     Dosage: 40 MILLIGRAM
     Route: 048
     Dates: start: 2020
  3. PROPRANOLOL [Concomitant]
     Active Substance: PROPRANOLOL HYDROCHLORIDE
     Indication: Anxiety
     Dosage: 20 MILLIGRAM, BID
     Route: 048
     Dates: start: 2021
  4. RISPERIDONE [Concomitant]
     Active Substance: RISPERIDONE
     Indication: Agitation
     Dosage: 0.5 MILLIGRAM, BID
     Route: 048
     Dates: start: 2020
  5. CLONAZEPAM [Concomitant]
     Active Substance: CLONAZEPAM
     Indication: Anxiety
     Dosage: 0.5, 3-4 QHS
     Route: 048
     Dates: start: 2020
  6. CABERGOLINE [Concomitant]
     Active Substance: CABERGOLINE
     Dosage: 0.5, BID
     Route: 048
     Dates: start: 202112

REACTIONS (1)
  - Angioedema [Recovered/Resolved]

NARRATIVE: CASE EVENT DATE: 20220120
